FAERS Safety Report 10584695 (Version 1)
Quarter: 2014Q4

REPORT INFORMATION
  Report Type: Spontaneous
  Country: US (occurrence: None)
  Receive Date: 20141113
  Receipt Date: 20141113
  Transmission Date: 20150529
  Serious: Yes (Death, Hospitalization)
  Sender: FDA-Public Use
  Company Number: USW201410-000254

PATIENT
  Age: 82 Year
  Sex: Male

DRUGS (5)
  1. WELLBUTRIN (BUPROPION) [Concomitant]
  2. MIRAPOX [Concomitant]
  3. APOKYN [Suspect]
     Active Substance: APOMORPHINE HYDROCHLORIDE
     Indication: PARKINSON^S DISEASE
     Dosage: 0.4 ML, ONE TIME A MONTH
     Route: 058
  4. AZILECT (RASAGILINE) [Concomitant]
  5. SINEMET (LEVODOPA, CARVIDOPA) [Concomitant]

REACTIONS (1)
  - Pneumonia [None]

NARRATIVE: CASE EVENT DATE: 20141016
